FAERS Safety Report 6947365-4 (Version None)
Quarter: 2010Q3

REPORT INFORMATION
  Report Type: 
  Country: None (occurrence: None)
  Receive Date: 20100827
  Receipt Date: 20100820
  Transmission Date: 20110219
  Serious: Yes (Other)
  Sender: FDA-Public Use
  Company Number: US-AMGEN-QUU416010

PATIENT
  Sex: Male

DRUGS (7)
  1. NPLATE [Suspect]
     Indication: IDIOPATHIC THROMBOCYTOPENIC PURPURA
     Route: 058
     Dates: start: 20100217, end: 20100505
  2. CORTICOSTEROIDS [Concomitant]
     Dates: start: 20091018
  3. WINRHO [Concomitant]
     Dates: start: 20090813
  4. PREDNISONE [Concomitant]
     Dates: start: 20091101
  5. TYLENOL-500 [Concomitant]
  6. ZANTAC [Concomitant]
     Route: 048
  7. BACTRIM [Concomitant]
     Route: 048

REACTIONS (1)
  - THERAPEUTIC RESPONSE DECREASED [None]
